FAERS Safety Report 16918658 (Version 1)
Quarter: 2019Q4

REPORT INFORMATION
  Report Type: Spontaneous
  Country: IN (occurrence: IN)
  Receive Date: 20191015
  Receipt Date: 20191015
  Transmission Date: 20200122
  Serious: Yes (Death)
  Sender: FDA-Public Use
  Company Number: IN-PFIZER INC-2019445052

PATIENT
  Age: 49 Year
  Sex: Female

DRUGS (1)
  1. INLYTA [Suspect]
     Active Substance: AXITINIB
     Indication: METASTATIC RENAL CELL CARCINOMA
     Dosage: 1MG/ TWICE A DAY
     Route: 048
     Dates: start: 20180911, end: 20181014

REACTIONS (1)
  - Death [Fatal]

NARRATIVE: CASE EVENT DATE: 20181014
